FAERS Safety Report 21197785 (Version 2)
Quarter: 2022Q3

REPORT INFORMATION
  Report Type: Report from Study
  Country: CA (occurrence: CA)
  Receive Date: 20220810
  Receipt Date: 20220927
  Transmission Date: 20221026
  Serious: Yes (Hospitalization, Other)
  Sender: FDA-Public Use
  Company Number: CA-HLS-202201428

PATIENT
  Age: 35 Year
  Sex: Female

DRUGS (3)
  1. CLOZARIL [Suspect]
     Active Substance: CLOZAPINE
     Indication: Product used for unknown indication
     Route: 048
     Dates: start: 20191016
  2. CLOZARIL [Suspect]
     Active Substance: CLOZAPINE
     Indication: Product used for unknown indication
     Route: 048
     Dates: start: 20191016, end: 20220906
  3. CLOZARIL [Suspect]
     Active Substance: CLOZAPINE
     Indication: Product used for unknown indication
     Dosage: DRUG START DATE: 09-SEP-2022
     Route: 048

REACTIONS (4)
  - Hot flush [Not Recovered/Not Resolved]
  - Therapy interrupted [Recovered/Resolved]
  - Somnolence [Not Recovered/Not Resolved]
  - Confusional arousal [Not Recovered/Not Resolved]

NARRATIVE: CASE EVENT DATE: 20220906
